FAERS Safety Report 4305302-5 (Version None)
Quarter: 2004Q1

REPORT INFORMATION
  Report Type: 
  Country: None (occurrence: None)
  Receive Date: 20040226
  Receipt Date: 20030324
  Transmission Date: 20041129
  Serious: Yes (Hospitalization)
  Sender: FDA-Public Use
  Company Number: US-BRISTOL-MYERS SQUIBB COMPANY-12219598

PATIENT
  Age: 75 Year
  Sex: Male
  Weight: 49 kg

DRUGS (8)
  1. TAXOL [Suspect]
     Indication: LARYNGEAL CANCER
     Route: 042
     Dates: start: 20020816, end: 20020816
  2. FLUOROURACIL [Suspect]
     Indication: LARYNGEAL CANCER
     Route: 042
     Dates: start: 20020811, end: 20020816
  3. COUMADIN [Concomitant]
  4. INSULIN [Concomitant]
  5. FENTANYL [Concomitant]
     Route: 062
  6. PREVACID [Concomitant]
  7. PERI-COLACE [Concomitant]
  8. SORBITOL [Concomitant]

REACTIONS (2)
  - INJECTION SITE INFECTION [None]
  - PNEUMONIA [None]
